FAERS Safety Report 6546354-1 (Version None)
Quarter: 2010Q1

REPORT INFORMATION
  Report Type: 
  Country: None (occurrence: None)
  Receive Date: 20100115
  Receipt Date: 20091228
  Transmission Date: 20100710
  Serious: No
  Sender: FDA-Public Use
  Company Number: 2009-00930

PATIENT
  Sex: Male

DRUGS (1)
  1. COLD REMEDY LIQUI-LOZ [Suspect]
     Dosage: ^ABOUT 3 DAYS^

REACTIONS (1)
  - AGEUSIA [None]
